FAERS Safety Report 7700805-5 (Version None)
Quarter: 2011Q3

REPORT INFORMATION
  Report Type: 
  Country: None (occurrence: None)
  Receive Date: 20110822
  Receipt Date: 20110816
  Transmission Date: 20111222
  Serious: Yes (Death, Other)
  Sender: FDA-Public Use
  Company Number: US-ROCHE-647995

PATIENT

DRUGS (4)
  1. ALEMTUZUMAB [Suspect]
     Dosage: ON DAY 0, INDUCTION THERAPY
     Route: 065
  2. BASILIXIMAB [Suspect]
     Dosage: DAY 0-4. TWO DOSES.
     Route: 065
  3. MYCOPHENOLATE MOFETIL [Suspect]
     Dosage: AS MAINTANENCE THERAPY
     Route: 065
  4. TACROLIMUS [Suspect]
     Dosage: AS MAINTANENCE
     Route: 065

REACTIONS (5)
  - NEOPLASM MALIGNANT [None]
  - DEATH [None]
  - TRANSPLANT REJECTION [None]
  - CYTOMEGALOVIRUS VIRAEMIA [None]
  - BK VIRUS INFECTION [None]
